FAERS Safety Report 7412948-4 (Version None)
Quarter: 2011Q2

REPORT INFORMATION
  Report Type: 
  Country: None (occurrence: None)
  Receive Date: 20110413
  Receipt Date: 20110407
  Transmission Date: 20111010
  Serious: Yes (Hospitalization)
  Sender: FDA-Public Use
  Company Number: US-GILEAD-2011-0037982

PATIENT
  Sex: Male

DRUGS (5)
  1. LETAIRIS [Suspect]
     Indication: ARTHRITIS
  2. LETAIRIS [Suspect]
     Indication: SARCOIDOSIS
  3. LETAIRIS [Suspect]
     Indication: PULMONARY HYPERTENSION
     Route: 048
     Dates: start: 20110218
  4. LETAIRIS [Suspect]
     Indication: MONOCLONAL GAMMOPATHY
  5. LETAIRIS [Suspect]
     Indication: PULMONARY EMBOLISM

REACTIONS (2)
  - DYSPNOEA [None]
  - FLUID RETENTION [None]
